FAERS Safety Report 8279294-0 (Version None)
Quarter: 2012Q2

REPORT INFORMATION
  Report Type: 
  Country: None (occurrence: None)
  Receive Date: 20120412
  Receipt Date: 20120327
  Transmission Date: 20120825
  Serious: Yes (Other)
  Sender: FDA-Public Use
  Company Number: CHPA2012US005984

PATIENT
  Age: 23 Year
  Sex: Male

DRUGS (1)
  1. BENEFIBER W/ WHEAT DEXTRIN [Suspect]
     Indication: NUTRITIONAL SUPPORT
     Dosage: UNK, UNK
     Route: 048
     Dates: start: 20111101, end: 20120326

REACTIONS (4)
  - PHARYNGEAL ABSCESS [None]
  - APHONIA [None]
  - SOMNOLENCE [None]
  - OROPHARYNGEAL PAIN [None]
